FAERS Safety Report 10506898 (Version 1)
Quarter: 2014Q4

REPORT INFORMATION
  Report Type: Spontaneous
  Country: CA (occurrence: CA)
  Receive Date: 20141009
  Receipt Date: 20141009
  Transmission Date: 20150528
  Serious: Yes (Life-Threatening, Hospitalization)
  Sender: FDA-Public Use
  Company Number: CA-009507513-1410CAN002916

PATIENT
  Age: 45 Year
  Sex: Male
  Weight: 80 kg

DRUGS (9)
  1. TESTOSTERONE. [Concomitant]
     Active Substance: TESTOSTERONE
     Dosage: UNK
     Route: 065
  2. INTERFERON NOS [Suspect]
     Active Substance: INTERFERON
     Dosage: 180 MICROGRAM, 1 EVERY 1 WEEK
     Route: 051
  3. IBUPROFEN. [Concomitant]
     Active Substance: IBUPROFEN
     Dosage: UNK
     Route: 065
  4. VICTRELIS TRIPLE [Suspect]
     Active Substance: BOCEPREVIR\PEGINTERFERON ALFA-2B\RIBAVIRIN
     Dosage: BOCEPREVIR CAPSULE 200 MG
     Route: 048
  5. PEGETRON [Suspect]
     Active Substance: PEGINTERFERON ALFA-2B\RIBAVIRIN
     Dosage: RIBAVIRIN, 400 MG EVERY 12 HOURS
     Route: 048
  6. VICTRELIS TRIPLE [Suspect]
     Active Substance: BOCEPREVIR\PEGINTERFERON ALFA-2B\RIBAVIRIN
     Dosage: RIBAVIRIN CAPSULE 200 MG
     Route: 048
  7. VICTRELIS TRIPLE [Suspect]
     Active Substance: BOCEPREVIR\PEGINTERFERON ALFA-2B\RIBAVIRIN
     Dosage: PEGINTERFERON ALFA-2B POWDER FOR SOLUTION
     Route: 065
  8. PEGETRON [Suspect]
     Active Substance: PEGINTERFERON ALFA-2B\RIBAVIRIN
     Dosage: PEGINTERFERON ALFA-2B
     Route: 065
  9. EPREX [Suspect]
     Active Substance: ERYTHROPOIETIN
     Dosage: 40000 UNITS, 1 EVERY 1 WEEK
     Route: 051

REACTIONS (1)
  - Myocardial infarction [Unknown]
